FAERS Safety Report 19690820 (Version 1)
Quarter: 2021Q3

REPORT INFORMATION
  Report Type: Spontaneous
  Country: US (occurrence: US)
  Receive Date: 20210812
  Receipt Date: 20210812
  Transmission Date: 20211014
  Serious: Yes (Death, Other)
  Sender: FDA-Public Use
  Company Number: US-SLATE RUN PHARMACEUTICALS-21US000630

PATIENT

DRUGS (3)
  1. BUPROPION HYDROCHLORIDE EXTENDED RELEASE USP (XL) [Suspect]
     Active Substance: BUPROPION HYDROCHLORIDE
     Dosage: UNK
  2. BUPROPION HYDROCHLORIDE EXTENDED RELEASE USP (XL) [Suspect]
     Active Substance: BUPROPION HYDROCHLORIDE
     Indication: PRODUCT USED FOR UNKNOWN INDICATION
     Dosage: 28.2 GRAM, SINGLE
     Route: 048
  3. OXCARBAZEPINE. [Suspect]
     Active Substance: OXCARBAZEPINE
     Indication: PRODUCT USED FOR UNKNOWN INDICATION
     Dosage: UNK

REACTIONS (17)
  - Cardiac arrest [Fatal]
  - Ejection fraction decreased [Unknown]
  - Overdose [None]
  - Tachycardia [Unknown]
  - Hyperhidrosis [Unknown]
  - Hypothermia [Unknown]
  - Electrocardiogram QT prolonged [Unknown]
  - Hypertension [Unknown]
  - Bundle branch block left [Unknown]
  - Hypotension [Unknown]
  - Ventricular fibrillation [Fatal]
  - Mydriasis [Unknown]
  - Cardiopulmonary failure [Fatal]
  - Ventricular hypokinesia [Unknown]
  - Electrocardiogram QRS complex prolonged [Unknown]
  - Seizure [Unknown]
  - Toxicity to various agents [None]
